FAERS Safety Report 15919598 (Version 1)
Quarter: 2019Q1

REPORT INFORMATION
  Report Type: Spontaneous
  Country: US (occurrence: US)
  Receive Date: 20190205
  Receipt Date: 20190205
  Transmission Date: 20190417
  Serious: No
  Sender: FDA-Public Use
  Company Number: US-ROCHE-2097274

PATIENT
  Age: 54 Year
  Sex: Female
  Weight: 68.1 kg

DRUGS (1)
  1. XOLAIR [Suspect]
     Active Substance: OMALIZUMAB
     Indication: ASTHMA
     Dosage: 3 SHOTS EVERY OTHER  WEEK ;ONGOING: NO
     Route: 058
     Dates: start: 20150910, end: 20180301

REACTIONS (6)
  - Noninfective gingivitis [Recovered/Resolved]
  - Gingival swelling [Recovered/Resolved]
  - Hypoaesthesia [Not Recovered/Not Resolved]
  - Gingival bleeding [Recovered/Resolved]
  - Insomnia [Not Recovered/Not Resolved]
  - Initial insomnia [Not Recovered/Not Resolved]

NARRATIVE: CASE EVENT DATE: 201703
